FAERS Safety Report 20629589 (Version 5)
Quarter: 2022Q4

REPORT INFORMATION
  Report Type: Report from Study
  Country: US (occurrence: None)
  Receive Date: 20220323
  Receipt Date: 20221111
  Transmission Date: 20230113
  Serious: Yes (Other)
  Sender: FDA-Public Use
  Company Number: US-ROCHE-3050184

PATIENT
  Age: 67 Year
  Sex: Male
  Weight: 104 kg

DRUGS (34)
  1. RANIBIZUMAB [Suspect]
     Active Substance: RANIBIZUMAB
     Indication: Diabetic retinal oedema
     Dosage: START DATE OF MOST RECENT DOSE OF STUDY DRUG PRIOR TO AE 23/DEC/2021?START DATE OF MOST RECENT DOSE
     Route: 050
     Dates: start: 20191105
  2. RANIBIZUMAB [Suspect]
     Active Substance: RANIBIZUMAB
  3. RANIBIZUMAB [Suspect]
     Active Substance: RANIBIZUMAB
  4. RANIBIZUMAB [Suspect]
     Active Substance: RANIBIZUMAB
  5. RANIBIZUMAB [Suspect]
     Active Substance: RANIBIZUMAB
  6. RANIBIZUMAB [Concomitant]
     Active Substance: RANIBIZUMAB
     Dosage: FELLOW EYE
     Route: 050
  7. CARVEDILOL [Concomitant]
     Active Substance: CARVEDILOL
     Indication: Hypertension
     Dosage: 12.5 OTHER
     Route: 048
     Dates: start: 2011
  8. HUMALOG [Concomitant]
     Active Substance: INSULIN LISPRO
     Indication: Diabetes mellitus
     Dosage: 10 U
     Route: 058
     Dates: start: 1990
  9. LANTUS [Concomitant]
     Active Substance: INSULIN GLARGINE
     Indication: Diabetes mellitus
     Route: 058
     Dates: start: 1990
  10. NEXIUM [Concomitant]
     Active Substance: ESOMEPRAZOLE MAGNESIUM
     Indication: Gastrooesophageal reflux disease
     Dosage: 40 OTHER
     Route: 048
     Dates: start: 2011
  11. METFORMIN [Concomitant]
     Active Substance: METFORMIN HYDROCHLORIDE
     Indication: Diabetes mellitus
     Dosage: 500 OTHER
     Route: 048
     Dates: start: 1990
  12. REPATHA [Concomitant]
     Active Substance: EVOLOCUMAB
     Indication: Blood cholesterol increased
     Dosage: 140 OTHER
     Route: 048
     Dates: start: 201810
  13. AMLODIPINE [Concomitant]
     Active Substance: AMLODIPINE BESYLATE
     Indication: Hypertension
     Dosage: 10 OTHER
     Route: 048
     Dates: start: 201810
  14. ISOSORBIDE [Concomitant]
     Active Substance: ISOSORBIDE
     Dosage: 60 OTHER
     Route: 048
     Dates: start: 20200113
  15. METOPROLOL [Concomitant]
     Active Substance: METOPROLOL
     Indication: Atrial fibrillation
     Dosage: 15 OTHER
     Route: 048
     Dates: start: 20200113
  16. SPIRONOLACTONE [Concomitant]
     Active Substance: SPIRONOLACTONE
     Indication: Atrial fibrillation
     Dosage: 25 OTHER
     Route: 048
     Dates: start: 20200121
  17. XARELTO [Concomitant]
     Active Substance: RIVAROXABAN
     Indication: Atrial fibrillation
     Dosage: 50 OTHER
     Route: 048
     Dates: start: 20200305
  18. PLAVIX [Concomitant]
     Active Substance: CLOPIDOGREL BISULFATE
     Indication: Blood cholesterol increased
     Dosage: 75 OTHER
     Route: 048
     Dates: start: 20200306
  19. ASPIRIN [Concomitant]
     Active Substance: ASPIRIN
     Route: 048
     Dates: start: 20200307
  20. TORSEMIDE [Concomitant]
     Active Substance: TORSEMIDE
     Indication: Hypertension
     Dosage: 20 OTHER
     Route: 048
     Dates: start: 20201027
  21. AMIODARONE [Concomitant]
     Active Substance: AMIODARONE
     Indication: Atrial fibrillation
     Dosage: 200 OTHER
     Route: 048
     Dates: start: 20201006
  22. OFLOXACIN [Concomitant]
     Active Substance: OFLOXACIN
     Dates: start: 20211222, end: 20211224
  23. OFLOXACIN [Concomitant]
     Active Substance: OFLOXACIN
     Dosage: 4 GTT
     Route: 048
     Dates: start: 20200812, end: 20200815
  24. OFLOXACIN [Concomitant]
     Active Substance: OFLOXACIN
     Dosage: 1 GTT
     Route: 048
     Dates: start: 20210202, end: 20210205
  25. OFLOXACIN [Concomitant]
     Active Substance: OFLOXACIN
     Dates: start: 20210708, end: 20210711
  26. FUROSEMIDE [Concomitant]
     Active Substance: FUROSEMIDE
     Indication: Hypertension
     Route: 048
     Dates: start: 201810, end: 20201027
  27. POLYTRIM [Concomitant]
     Active Substance: POLYMYXIN B SULFATE\TRIMETHOPRIM SULFATE
     Dosage: 1 GTT
     Route: 047
     Dates: start: 20200303, end: 20200312
  28. PRED ACETATE [Concomitant]
     Indication: Conjunctival irritation
     Dosage: 1 GTT
     Route: 047
     Dates: start: 20200303, end: 20200319
  29. PRED ACETATE [Concomitant]
     Dosage: 1 GTT
     Route: 047
     Dates: start: 20200320, end: 20200327
  30. PRED ACETATE [Concomitant]
     Dosage: 1 GTT
     Route: 047
     Dates: start: 20200328, end: 20200403
  31. PRED ACETATE [Concomitant]
     Dosage: 1 GTT
     Route: 047
     Dates: start: 20200404, end: 20200407
  32. PRED ACETATE [Concomitant]
     Dosage: 1 GTT
     Route: 047
     Dates: start: 20200407, end: 20200414
  33. PROLENSA [Concomitant]
     Active Substance: BROMFENAC SODIUM
     Dosage: 1 GTT
     Route: 047
     Dates: start: 20200306, end: 20200406
  34. BACITRACIN [Concomitant]
     Active Substance: BACITRACIN
     Indication: Conjunctival irritation

REACTIONS (2)
  - Device issue [Unknown]
  - Conjunctival retraction [Not Recovered/Not Resolved]

NARRATIVE: CASE EVENT DATE: 20200407
